FAERS Safety Report 13526094 (Version 1)
Quarter: 2017Q2

REPORT INFORMATION
  Report Type: Spontaneous
  Country: US (occurrence: US)
  Receive Date: 20170509
  Receipt Date: 20170509
  Transmission Date: 20170830
  Serious: No
  Sender: FDA-Public Use
  Company Number: US-AMGEN-USASP2017067343

PATIENT
  Age: 65 Year
  Sex: Female

DRUGS (1)
  1. ENBREL [Suspect]
     Active Substance: ETANERCEPT
     Indication: RHEUMATOID ARTHRITIS
     Dosage: 50 MG, QWK
     Route: 058
     Dates: start: 201704

REACTIONS (6)
  - Headache [Unknown]
  - Peripheral swelling [Unknown]
  - Pollakiuria [Unknown]
  - Abdominal pain [Unknown]
  - Drug effect delayed [Unknown]
  - Pruritus [Unknown]

NARRATIVE: CASE EVENT DATE: 2017
